FAERS Safety Report 25543947 (Version 1)
Quarter: 2025Q3

REPORT INFORMATION
  Report Type: Spontaneous
  Country: US (occurrence: US)
  Receive Date: 20250711
  Receipt Date: 20250711
  Transmission Date: 20251020
  Serious: Yes (Death)
  Sender: DOMPE FARMACEUTICI
  Company Number: US-FARMAPROD-202505-1758

PATIENT
  Sex: Female

DRUGS (12)
  1. OXERVATE [Suspect]
     Active Substance: CENEGERMIN-BKBJ
     Indication: Neurotrophic keratopathy
     Route: 047
     Dates: start: 20250527
  2. OXERVATE [Suspect]
     Active Substance: CENEGERMIN-BKBJ
  3. GABAPENTIN [Concomitant]
     Active Substance: GABAPENTIN
  4. TOPIRAMATE [Concomitant]
     Active Substance: TOPIRAMATE
  5. TRAZODONE [Concomitant]
     Active Substance: TRAZODONE HYDROCHLORIDE
  6. ZOLPIDEM [Concomitant]
     Active Substance: ZOLPIDEM TARTRATE
  7. MIDODRINE [Concomitant]
     Active Substance: MIDODRINE
  8. AIMOVIG [Concomitant]
     Active Substance: ERENUMAB-AOOE
  9. TIZANIDINE [Concomitant]
     Active Substance: TIZANIDINE
  10. HYDROXYZINE [Concomitant]
     Active Substance: HYDROXYZINE HYDROCHLORIDE
  11. PRIMIDONE [Concomitant]
     Active Substance: PRIMIDONE
  12. DEPAKOTE [Concomitant]
     Active Substance: DIVALPROEX SODIUM

REACTIONS (2)
  - Death [Fatal]
  - Therapy interrupted [Unknown]
